FAERS Safety Report 17649102 (Version 1)
Quarter: 2020Q2

REPORT INFORMATION
  Report Type: Spontaneous
  Country: BE (occurrence: BE)
  Receive Date: 20200408
  Receipt Date: 20200408
  Transmission Date: 20200713
  Serious: Yes (Hospitalization)
  Sender: FDA-Public Use
  Company Number: BE-009507513-2004BEL000273

PATIENT
  Sex: Female
  Weight: 97.4 kg

DRUGS (10)
  1. METFORMIN [Concomitant]
     Active Substance: METFORMIN HYDROCHLORIDE
     Dosage: 2 DOSAGE FORM, QD; STRENGTH: 500 MG
     Dates: start: 202002
  2. METFORMAX [Concomitant]
     Active Substance: METFORMIN HYDROCHLORIDE
     Dosage: 2 DOSAGE FORM, QD; STRENGTH: 500 MG
     Dates: start: 201811
  3. EZETIMIBE. [Suspect]
     Active Substance: EZETIMIBE
     Indication: HYPERCHOLESTEROLAEMIA
     Dosage: 1 DOSAGE FORM, QD; STRENGTH: 10MG
     Dates: start: 20190124, end: 20200212
  4. CYMBALTA [Concomitant]
     Active Substance: DULOXETINE HYDROCHLORIDE
     Dosage: 1 DOSAGE FORM, QD; STRENGTH: 60MG
     Dates: start: 201811
  5. PANTOZOL [Concomitant]
     Active Substance: PANTOPRAZOLE SODIUM
     Dosage: 1 DOSAGE FORM, QD; STRENGTH: 40 MG
     Dates: start: 202002
  6. CRESTOR [Suspect]
     Active Substance: ROSUVASTATIN CALCIUM
     Indication: HYPERCHOLESTEROLAEMIA
     Dosage: 1 DOSAGE FORM, QD; STRENGTH: 40MG, FORMULATION: FILM COATED TABLET
     Route: 048
     Dates: start: 2003, end: 20181102
  7. L-THYROXIN [Concomitant]
     Active Substance: LEVOTHYROXINE SODIUM
     Dosage: 1 DOSAGE FORM, QD; STRENGTH: 10UG; FORMULATION: TABLET
     Dates: start: 202002
  8. NOBITEN [Concomitant]
     Active Substance: NEBIVOLOL
     Dosage: 1 DOSAGE FORM, QD; STRENGTH: 5MG
     Dates: start: 201811
  9. TOTALIP [Suspect]
     Active Substance: ATORVASTATIN
     Indication: HYPERCHOLESTEROLAEMIA
     Dosage: 1 DOSAGE FORM, QD; STRENGTH: 10MG, FORMULATION: FILM COATED TABLET
     Route: 048
     Dates: start: 20190911, end: 20200211
  10. GAMBARAN [Concomitant]
     Active Substance: NABUMETONE
     Dosage: 1 DOSAGE FORM, QD; STRENGTH: 500MG
     Dates: start: 201811

REACTIONS (2)
  - Pancreatitis relapsing [Recovering/Resolving]
  - Pancreatitis acute [Recovered/Resolved]

NARRATIVE: CASE EVENT DATE: 20181102
